FAERS Safety Report 9345659 (Version 1)
Quarter: 2013Q2

REPORT INFORMATION
  Report Type: Spontaneous
  Country: US (occurrence: US)
  Receive Date: 20130613
  Receipt Date: 20130613
  Transmission Date: 20140414
  Serious: No
  Sender: FDA-Public Use
  Company Number: US-FOUGERA-2012FO001308

PATIENT
  Sex: Female

DRUGS (1)
  1. HYDROCORTISONE [Suspect]
     Indication: PRURITUS
     Route: 061

REACTIONS (2)
  - Accidental exposure to product [Recovered/Resolved]
  - Hypoaesthesia oral [Not Recovered/Not Resolved]
